FAERS Safety Report 6249357-X (Version None)
Quarter: 2009Q2

REPORT INFORMATION
  Report Type: 
  Country: None (occurrence: None)
  Receive Date: 20090629
  Receipt Date: 20090618
  Transmission Date: 20091009
  Serious: Yes (Death, Hospitalization)
  Sender: FDA-Public Use
  Company Number: JP-JNJFOC-20090505955

PATIENT
  Sex: Female
  Weight: 46 kg

DRUGS (13)
  1. REMICADE [Suspect]
     Dosage: 13TH INFUSION
     Route: 042
  2. REMICADE [Suspect]
     Dosage: 11 INFUSIONS ADMINISTERED ON UNSPECIFIED DATES
     Route: 042
  3. REMICADE [Suspect]
     Indication: RHEUMATOID ARTHRITIS
     Route: 042
  4. RHEUMATREX [Suspect]
     Indication: RHEUMATOID ARTHRITIS
     Route: 048
  5. BONALON [Concomitant]
     Indication: OSTEOPOROSIS
     Route: 048
  6. ANKISOL [Concomitant]
     Indication: COUGH
     Route: 048
  7. ASASURFAN [Concomitant]
     Indication: RHEUMATOID ARTHRITIS
     Route: 048
  8. ZANTAC [Concomitant]
     Indication: GASTRITIS
     Route: 048
  9. SEPAZON [Concomitant]
     Indication: INSOMNIA
     Route: 048
  10. PREDNISOLONE [Concomitant]
     Indication: RHEUMATOID ARTHRITIS
     Route: 048
  11. FOLIAMIN [Concomitant]
     Indication: RHEUMATOID ARTHRITIS
     Route: 048
  12. CYTOTEC [Concomitant]
     Indication: GASTRITIS
     Route: 048
  13. NICHISTATE [Concomitant]
     Indication: THROMBOPHLEBITIS
     Route: 048

REACTIONS (2)
  - INTERSTITIAL LUNG DISEASE [None]
  - PNEUMOCYSTIS JIROVECI PNEUMONIA [None]
